FAERS Safety Report 23307775 (Version 1)
Quarter: 2023Q4

REPORT INFORMATION
  Report Type: Spontaneous
  Country: US (occurrence: US)
  Receive Date: 20231218
  Receipt Date: 20231218
  Transmission Date: 20240109
  Serious: Yes (Hospitalization, Other)
  Sender: FDA-Public Use
  Company Number: US-BAYER-2023A175317

PATIENT
  Sex: Female

DRUGS (1)
  1. MIRENA [Suspect]
     Active Substance: LEVONORGESTREL
     Indication: Contraception
     Dosage: 20?G/DAY
     Route: 015
     Dates: start: 202102, end: 202305

REACTIONS (6)
  - Uterine perforation [None]
  - Mental disorder [None]
  - Stress [None]
  - Abdominal pain lower [None]
  - Loss of personal independence in daily activities [None]
  - Scar [None]
